FAERS Safety Report 15357976 (Version 2)
Quarter: 2018Q4

REPORT INFORMATION
  Report Type: Spontaneous
  Country: DE (occurrence: DE)
  Receive Date: 20180906
  Receipt Date: 20181001
  Transmission Date: 20190204
  Serious: Yes (Death, Life-Threatening, Hospitalization, Other)
  Sender: FDA-Public Use
  Company Number: PHHY2017DE204763

PATIENT
  Sex: Female

DRUGS (6)
  1. IBUPROFEN. [Suspect]
     Active Substance: IBUPROFEN
     Dosage: 2 G, UNK (2G, OVERALL DOSE. QUANTITY 5)
     Route: 065
  2. MIRTAZAPINE. [Interacting]
     Active Substance: MIRTAZAPINE
     Indication: SUICIDE ATTEMPT
     Dosage: 7.5 G, UNK (QUANTITY 23.5,7.5G OVERALL DOSE ABSOLUTE; DOSE PER KG BODY WEIGHT:13 MG/KG)
     Route: 048
  3. SINUPRET [Suspect]
     Active Substance: HERBALS
     Indication: SUICIDE ATTEMPT
     Dosage: 5 DF, UNK
     Route: 065
  4. QUETIAPINE FUMARATE. [Interacting]
     Active Substance: QUETIAPINE FUMARATE
     Indication: SUICIDE ATTEMPT
     Dosage: 5.8 G, UNK (QUATITY 29)
     Route: 065
  5. QUETIAPINE FUMARATE. [Interacting]
     Active Substance: QUETIAPINE FUMARATE
     Dosage: 8.7 G, UNK (8.7G; QUANTITY 29; ABSOLUTE OVERALL DOSE 14.5 G, DOSE 25 MG/KG PER KG BODY WEIGHT)
     Route: 065
  6. IBUPROFEN. [Suspect]
     Active Substance: IBUPROFEN
     Indication: SUICIDE ATTEMPT
     Dosage: 3 G, UNK (QUANTITY 5; 3G OVERALL DOSE; ABSOLUTE OVERALL DOSE 5G, DOSE OF 8MG/KG BODY WEIGHT)
     Route: 065

REACTIONS (9)
  - Respiratory failure [Fatal]
  - Seizure [Unknown]
  - Hypoxia [Unknown]
  - Loss of consciousness [Unknown]
  - Hypotension [Unknown]
  - Acute respiratory distress syndrome [Unknown]
  - Toxicity to various agents [Unknown]
  - Drug interaction [Unknown]
  - Off label use [Unknown]
